FAERS Safety Report 5696712-2 (Version None)
Quarter: 2008Q2

REPORT INFORMATION
  Report Type: 
  Country: None (occurrence: None)
  Receive Date: 20080408
  Receipt Date: 20080401
  Transmission Date: 20081010
  Serious: Yes (Hospitalization, Other)
  Sender: FDA-Public Use
  Company Number: US-MERCK-0705USA02824

PATIENT
  Age: 84 Year
  Sex: Male

DRUGS (4)
  1. FOSAMAX [Suspect]
     Indication: OSTEOPENIA
     Route: 048
     Dates: start: 20021202, end: 20030101
  2. FOSAMAX [Suspect]
     Route: 048
     Dates: start: 20050103, end: 20060531
  3. FOSAMAX [Suspect]
     Indication: OSTEOPOROSIS
     Route: 048
     Dates: start: 20021202, end: 20030101
  4. FOSAMAX [Suspect]
     Route: 048
     Dates: start: 20050103, end: 20060531

REACTIONS (31)
  - ANXIETY [None]
  - ASTHENIA [None]
  - BRONCHITIS [None]
  - CARDIAC FAILURE CONGESTIVE [None]
  - CHEST PAIN [None]
  - CONSTIPATION [None]
  - DEEP VEIN THROMBOSIS [None]
  - DENTAL CARIES [None]
  - DEPRESSION [None]
  - DYSPNOEA [None]
  - EXOSTOSIS [None]
  - FAILURE OF IMPLANT [None]
  - GASTROENTERITIS [None]
  - HYPERPARATHYROIDISM [None]
  - IVTH NERVE PARALYSIS [None]
  - MUSCLE SPASMS [None]
  - NEOPLASM SKIN [None]
  - ONYCHOMYCOSIS [None]
  - ORTHOSTATIC HYPOTENSION [None]
  - OSTEOMYELITIS ACUTE [None]
  - OVERWEIGHT [None]
  - PERIODONTAL DISEASE [None]
  - PULPITIS DENTAL [None]
  - STOMATITIS [None]
  - SUPRAVENTRICULAR TACHYCARDIA [None]
  - SYNCOPE [None]
  - TOOTH ABSCESS [None]
  - TOOTH DISORDER [None]
  - TOOTH LOSS [None]
  - URINARY RETENTION [None]
  - URINARY TRACT INFECTION [None]
